FAERS Safety Report 9850922 (Version 3)
Quarter: 2014Q1

REPORT INFORMATION
  Report Type: Spontaneous
  Country: US (occurrence: US)
  Receive Date: 20140128
  Receipt Date: 20140205
  Transmission Date: 20141002
  Serious: Yes (Other)
  Sender: FDA-Public Use
  Company Number: US-GILEAD-2012-0052730

PATIENT
  Age: 37 Year
  Sex: Male
  Weight: 93.42 kg

DRUGS (5)
  1. COMPLERA [Suspect]
     Indication: HIV INFECTION
     Dosage: UNK
     Route: 048
     Dates: start: 20120201, end: 20120301
  2. TRUVADA [Suspect]
     Indication: HIV INFECTION
     Route: 065
  3. TENOFOVIR DISOPROXIL FUMARATE [Suspect]
     Indication: HIV INFECTION
     Dosage: UNK
     Route: 065
     Dates: end: 201202
  4. LAMIVUDINE [Concomitant]
     Indication: HIV INFECTION
     Dosage: UNK
     Dates: end: 201202
  5. ETRAVIRINE [Concomitant]
     Indication: HIV INFECTION
     Dosage: UNK
     Dates: end: 201202

REACTIONS (2)
  - Mental impairment [Recovered/Resolved]
  - Weight increased [Recovered/Resolved]
